FAERS Safety Report 4818978-0 (Version None)
Quarter: 2005Q4

REPORT INFORMATION
  Report Type: 
  Country: None (occurrence: None)
  Receive Date: 20051103
  Receipt Date: 20051027
  Transmission Date: 20060501
  Serious: Yes (Hospitalization, Other)
  Sender: FDA-Public Use
  Company Number: US-ABBOTT-05P-163-0315424-00

PATIENT
  Sex: Female
  Weight: 82.628 kg

DRUGS (14)
  1. HUMIRA 40 MG/ 0.8 ML PRE-FILLED SYRINGE [Suspect]
     Indication: RHEUMATOID ARTHRITIS
     Route: 058
     Dates: start: 20050830
  2. MELOXICAM [Concomitant]
     Indication: RHEUMATOID ARTHRITIS
     Route: 048
     Dates: start: 20050101
  3. ZESTIA [Concomitant]
     Indication: HYPERLIPIDAEMIA
     Route: 048
  4. CRESTOR [Concomitant]
     Indication: HYPERLIPIDAEMIA
     Route: 048
  5. MESALAMINE [Concomitant]
     Indication: IRRITABLE BOWEL SYNDROME
     Route: 048
  6. TIMOLOL MALEATE [Concomitant]
     Indication: GLAUCOMA
     Route: 031
  7. AMITRIPTYLINE HCL [Concomitant]
     Indication: MIGRAINE
     Route: 048
  8. LOTREL [Concomitant]
     Indication: BLOOD PRESSURE INCREASED
     Route: 048
  9. RABEPRAZOLE SODIUM [Concomitant]
     Indication: GASTROOESOPHAGEAL REFLUX DISEASE
     Route: 048
  10. FLUOXETINE HYDROCHLORIDE [Concomitant]
     Indication: ANXIETY
     Route: 048
  11. VICODIN [Concomitant]
     Indication: PAIN
     Route: 048
  12. ORPHENADRINE CITRATE [Concomitant]
     Indication: MUSCLE RELAXANT THERAPY
     Route: 048
  13. ALPRAZOLAM [Concomitant]
     Indication: ANXIETY
     Route: 048
  14. ACETAMINOPHEN [Concomitant]
     Indication: PAIN
     Route: 048

REACTIONS (6)
  - BURNING SENSATION [None]
  - CALCINOSIS [None]
  - INJECTION SITE HAEMORRHAGE [None]
  - INJECTION SITE IRRITATION [None]
  - LIPOMA [None]
  - SHOULDER PAIN [None]
